FAERS Safety Report 7628815-7 (Version None)
Quarter: 2011Q3

REPORT INFORMATION
  Report Type: 
  Country: None (occurrence: None)
  Receive Date: 20110722
  Receipt Date: 20110711
  Transmission Date: 20111222
  Serious: Yes (Other)
  Sender: FDA-Public Use
  Company Number: US-BAYER-201034481NA

PATIENT
  Age: 17 Year
  Sex: Female
  Weight: 70.295 kg

DRUGS (7)
  1. VICODIN ES [Concomitant]
     Dosage: UNK
     Dates: start: 20070201
  2. AUGMENTIN '125' [Concomitant]
     Dosage: UNK
     Dates: start: 20070201
  3. IBUPROFEN (ADVIL) [Concomitant]
  4. PROTONIX [Concomitant]
     Dosage: UNK
     Dates: start: 20060101
  5. PROAIR HFA [Concomitant]
     Dosage: UNK
     Dates: start: 20070201
  6. YASMIN [Suspect]
     Indication: ACNE
     Dosage: UNK UNK, UNK
     Route: 048
     Dates: start: 20040101, end: 20060101
  7. YASMIN [Suspect]
     Indication: PREMENSTRUAL SYNDROME

REACTIONS (6)
  - CHOLELITHIASIS [None]
  - MENTAL DISORDER [None]
  - GALLBLADDER DISORDER [None]
  - PULMONARY EMBOLISM [None]
  - DEEP VEIN THROMBOSIS [None]
  - CHOLECYSTITIS CHRONIC [None]
